FAERS Safety Report 9284976 (Version 3)
Quarter: 2013Q3

REPORT INFORMATION
  Report Type: Spontaneous
  Country: BR (occurrence: BR)
  Receive Date: 20130513
  Receipt Date: 20130902
  Transmission Date: 20140515
  Serious: Yes (Hospitalization, Other)
  Sender: FDA-Public Use
  Company Number: PHHY2013BR046150

PATIENT
  Age: 83 Year
  Sex: Female
  Weight: 42 kg

DRUGS (10)
  1. TRILEPTAL [Suspect]
     Indication: GRAND MAL CONVULSION
     Dosage: UNK UKN, UNK
  2. TRILEPTAL [Suspect]
     Dosage: 2 DF, BID (IN THE MORNING AND AT NIGHT)
     Route: 048
     Dates: start: 2010
  3. PROPANOLOL [Concomitant]
     Indication: EXTRASYSTOLES
     Dosage: 0.5 DF, BID
     Route: 048
  4. LOSARTAN [Concomitant]
     Indication: EXTRASYSTOLES
     Dosage: 1 DF, DAILY
     Route: 048
  5. SIMVASTATIN [Concomitant]
     Indication: CARDIOVASCULAR DISORDER
     Dosage: 40 MG, UNK (20 OR 40 MG)
  6. DIAMICRON [Concomitant]
     Indication: DIABETES MELLITUS
     Dosage: 1 DF, UNK
     Route: 048
  7. GLIFAGE [Concomitant]
     Indication: DIABETES MELLITUS
     Dosage: 1 DF, BID
     Route: 048
  8. CITALOPRAM [Concomitant]
     Indication: DEPRESSION
     Dosage: 1 DF, DAILY
     Route: 048
  9. PANTOPRAZOLE [Concomitant]
     Indication: GASTRIC DISORDER
     Dosage: 1 DF, DAILY (IN THE MORNING)
     Route: 048
     Dates: start: 2008
  10. SEROQUEL [Concomitant]
     Dosage: 1 DF, DAILY
     Route: 048
     Dates: start: 201212

REACTIONS (8)
  - Cerebrovascular accident [Recovered/Resolved]
  - Haemorrhage intracranial [Recovered/Resolved with Sequelae]
  - Urinary tract infection [Recovered/Resolved]
  - Convulsion [Unknown]
  - Dementia Alzheimer^s type [Not Recovered/Not Resolved]
  - Memory impairment [Recovering/Resolving]
  - Cardiac murmur [Unknown]
  - Depression [Unknown]
